FAERS Safety Report 5304819-4 (Version None)
Quarter: 2007Q2

REPORT INFORMATION
  Report Type: 
  Country: None (occurrence: None)
  Receive Date: 20070423
  Receipt Date: 20070413
  Transmission Date: 20071010
  Serious: Yes (Other)
  Sender: FDA-Public Use
  Company Number: JP-SANOFI-SYNTHELABO-F01200700158

PATIENT
  Sex: Male
  Weight: 61.65 kg

DRUGS (20)
  1. DIART [Concomitant]
     Dosage: 45 MG
     Route: 048
     Dates: start: 20060802
  2. MEILAX [Concomitant]
     Dosage: 2 TABLETS
     Route: 048
     Dates: end: 20060801
  3. AMOBAN [Concomitant]
     Dosage: 1 TABLET
     Route: 048
  4. AZUCURENIN S [Concomitant]
     Dosage: 1.5 G
     Route: 048
  5. NITOROL [Concomitant]
     Dosage: 3 TABLETS
     Route: 048
  6. COMELIAN [Concomitant]
     Dosage: 300 MG
     Route: 048
  7. TENAXIL [Concomitant]
     Dosage: 1 MG
     Route: 048
     Dates: start: 20060629, end: 20060910
  8. TENAXIL [Concomitant]
     Dosage: 2 MG
     Route: 048
     Dates: start: 20060911
  9. DIACORT [Concomitant]
     Dosage: 90 MG
     Route: 048
     Dates: end: 20060801
  10. GLIMICRON [Concomitant]
     Indication: DIABETES MELLITUS
     Dosage: 40 MG
     Route: 048
     Dates: end: 20060928
  11. GLIMICRON [Concomitant]
     Dosage: 80 MG
     Route: 048
     Dates: start: 20060929
  12. CARDENALIN [Concomitant]
     Indication: HYPERTENSION
     Dosage: 8 MG
     Route: 048
  13. WYTENS [Concomitant]
     Indication: HYPERTENSION
     Dosage: 4 MG
     Route: 048
  14. RENIVACE [Concomitant]
     Indication: HYPERTENSION
     Dosage: 10 MG
     Route: 048
  15. ADALAT [Concomitant]
     Indication: HYPERTENSION
     Dosage: 40 MG
     Route: 048
  16. BLOPRESS [Concomitant]
     Indication: HYPERTENSION
     Dosage: 8 MG
     Route: 048
  17. MAINTATE [Concomitant]
     Indication: HYPERTENSION
     Dosage: 5 MG
     Route: 048
  18. BAYERSPIRIN [Concomitant]
     Indication: ANTIPLATELET THERAPY
     Dosage: 100 MG
     Route: 048
     Dates: start: 20060802
  19. TICLOPIDINE HCL [Concomitant]
     Dosage: 200 MG
     Route: 048
     Dates: start: 20050101, end: 20060601
  20. CLOPIDOGREL [Suspect]
     Indication: LACUNAR INFARCTION
     Dosage: 75 MG
     Route: 048
     Dates: start: 20060630

REACTIONS (3)
  - BLOOD GLUCOSE INCREASED [None]
  - GLYCOSYLATED HAEMOGLOBIN INCREASED [None]
  - RENAL IMPAIRMENT [None]
